FAERS Safety Report 18351766 (Version 1)
Quarter: 2020Q4

REPORT INFORMATION
  Report Type: Spontaneous
  Country: US (occurrence: US)
  Receive Date: 20201006
  Receipt Date: 20201006
  Transmission Date: 20210114
  Serious: Yes (Hospitalization, Other)
  Sender: FDA-Public Use
  Company Number: US-GILEAD-2020-0497501

PATIENT
  Age: 59 Year
  Sex: Female
  Weight: 63.7 kg

DRUGS (16)
  1. YESCARTA [Suspect]
     Active Substance: AXICABTAGENE CILOLEUCEL
     Indication: DIFFUSE LARGE B-CELL LYMPHOMA
     Dosage: 68 ML
     Route: 041
     Dates: start: 20200915, end: 20200915
  2. FLUCONAZOLE. [Concomitant]
     Active Substance: FLUCONAZOLE
  3. LASIX [Concomitant]
     Active Substance: FUROSEMIDE
  4. ZOMETA [Concomitant]
     Active Substance: ZOLEDRONIC ACID
  5. CYTARABINE. [Concomitant]
     Active Substance: CYTARABINE
  6. ACYCLOVIR [ACICLOVIR] [Concomitant]
     Active Substance: ACYCLOVIR
  7. PEPCID [Concomitant]
     Active Substance: FAMOTIDINE
  8. AMIODARONE [Concomitant]
     Active Substance: AMIODARONE
  9. VANCOMYCIN [Concomitant]
     Active Substance: VANCOMYCIN
  10. CEFEPIME [Concomitant]
     Active Substance: CEFEPIME HYDROCHLORIDE
  11. MIDODRINE [Concomitant]
     Active Substance: MIDODRINE
  12. FLUDARABINE [Concomitant]
     Active Substance: FLUDARABINE PHOSPHATE
  13. ALLOPURINOL. [Concomitant]
     Active Substance: ALLOPURINOL
  14. CALCITONIN [Concomitant]
     Active Substance: CALCITONIN
  15. HYDROCORTISONE. [Concomitant]
     Active Substance: HYDROCORTISONE
  16. METOPROLOL. [Concomitant]
     Active Substance: METOPROLOL

REACTIONS (1)
  - Immune effector cell-associated neurotoxicity syndrome [Unknown]

NARRATIVE: CASE EVENT DATE: 20200919
